FAERS Safety Report 9450910 (Version 2)
Quarter: 2013Q3

REPORT INFORMATION
  Report Type: Spontaneous
  Country: US (occurrence: US)
  Receive Date: 20130809
  Receipt Date: 20130827
  Transmission Date: 20140515
  Serious: Yes (Hospitalization)
  Sender: FDA-Public Use
  Company Number: US-AMGEN-USASP2012083431

PATIENT
  Age: 54 Year
  Sex: Female

DRUGS (1)
  1. ENBREL [Suspect]
     Indication: RHEUMATOID ARTHRITIS
     Dosage: 50 MG, WEEKLY
     Route: 065
     Dates: start: 20120503, end: 201302

REACTIONS (7)
  - Infection [Recovered/Resolved]
  - Dehydration [Not Recovered/Not Resolved]
  - Thermal burn [Not Recovered/Not Resolved]
  - Laceration [Not Recovered/Not Resolved]
  - Wound infection [Not Recovered/Not Resolved]
  - Viral infection [Not Recovered/Not Resolved]
  - Burn infection [Not Recovered/Not Resolved]
